FAERS Safety Report 7225938-1 (Version None)
Quarter: 2011Q1

REPORT INFORMATION
  Report Type: 
  Country: None (occurrence: None)
  Receive Date: 20110113
  Receipt Date: 20110110
  Transmission Date: 20110831
  Serious: Yes (Death, Hospitalization)
  Sender: FDA-Public Use
  Company Number: BR-PFIZER INC-2011005692

PATIENT
  Age: 74 Year
  Sex: Female

DRUGS (2)
  1. OLMETEC [Suspect]
     Dosage: UNK
     Route: 048
     Dates: start: 20090101, end: 20110101
  2. NORVASC [Suspect]
     Dosage: UNK
     Route: 048

REACTIONS (2)
  - CARDIAC FAILURE [None]
  - DEATH [None]
